FAERS Safety Report 16264143 (Version 3)
Quarter: 2019Q2

REPORT INFORMATION
  Report Type: Spontaneous
  Country: US (occurrence: US)
  Receive Date: 20190502
  Receipt Date: 20190621
  Transmission Date: 20190711
  Serious: Yes (Other)
  Sender: FDA-Public Use
  Company Number: US-GLENMARK PHARMACEUTICALS-2019GMK041003

PATIENT

DRUGS (2)
  1. OMEPRAZOLE. [Suspect]
     Active Substance: OMEPRAZOLE
     Indication: GASTROOESOPHAGEAL REFLUX DISEASE
     Dosage: 40 MG, OD [START DATE: 6 TO 7 YEARS (ON AND OFF) AND STOP DATE: 4 MONTHS AGO]
     Route: 065
  2. OMEPRAZOLE. [Suspect]
     Active Substance: OMEPRAZOLE
     Indication: BARRETT^S OESOPHAGUS

REACTIONS (6)
  - Gastrooesophageal reflux disease [Unknown]
  - Malaise [Unknown]
  - Drug ineffective [Unknown]
  - Decreased appetite [Unknown]
  - Discomfort [Unknown]
  - Product substitution issue [Unknown]
